FAERS Safety Report 9096210 (Version 2)
Quarter: 2013Q1

REPORT INFORMATION
  Report Type: Report from Study
  Country: CO (occurrence: CO)
  Receive Date: 20130207
  Receipt Date: 20130318
  Transmission Date: 20140127
  Serious: Yes (Hospitalization)
  Sender: FDA-Public Use
  Company Number: CO-ROCHE-1188535

PATIENT
  Age: 54 Year
  Sex: Female

DRUGS (1)
  1. CELLCEPT [Suspect]
     Indication: LIVER TRANSPLANT
     Route: 048
     Dates: start: 20070307

REACTIONS (2)
  - Device occlusion [Recovered/Resolved]
  - Biliary sepsis [Recovered/Resolved]
